FAERS Safety Report 8216299-X (Version None)
Quarter: 2012Q1

REPORT INFORMATION
  Report Type: 
  Country: None (occurrence: None)
  Receive Date: 20120316
  Receipt Date: 20120309
  Transmission Date: 20120608
  Serious: Yes (Hospitalization)
  Sender: FDA-Public Use
  Company Number: PHEH2012US005559

PATIENT
  Sex: Male

DRUGS (9)
  1. METOPROLOL SUCCINATE [Concomitant]
     Dosage: 1 DF,
     Route: 048
  2. ONDANSETRON [Concomitant]
     Dosage: UNK UKN, UNK
  3. BENAZEPRIL HYDROCHLORIDE [Concomitant]
     Dosage: 1 DF,
     Route: 048
  4. PRAVASTATIN [Concomitant]
     Dosage: 80 MG,
     Route: 048
  5. CARBIDOPA + LEVODOPA [Concomitant]
     Dosage: 1 DF, TID
  6. ZOFRAN [Concomitant]
     Dosage: 8 MG, TID
     Route: 048
  7. REQUIP [Concomitant]
     Dosage: 12 MG,
     Route: 048
  8. TASIGNA [Suspect]
     Indication: CHRONIC MYELOID LEUKAEMIA
     Dosage: UNK UKN, UNK
  9. PANCRELIPASE [Concomitant]
     Dosage: 1 DF, TID
     Route: 048

REACTIONS (1)
  - ABDOMINAL PAIN [None]
